FAERS Safety Report 7905177-9 (Version None)
Quarter: 2011Q4

REPORT INFORMATION
  Report Type: 
  Country: None (occurrence: None)
  Receive Date: 20111109
  Receipt Date: 20111107
  Transmission Date: 20120403
  Serious: Yes (Death)
  Sender: FDA-Public Use
  Company Number: US-CELGENEUS-163-21880-11110870

PATIENT
  Sex: Female

DRUGS (2)
  1. REVLIMID [Suspect]
     Dosage: 10 MILLIGRAM
     Route: 048
     Dates: start: 20100701, end: 20110101
  2. REVLIMID [Suspect]
     Indication: HODGKIN'S DISEASE
     Dosage: 10 MILLIGRAM
     Route: 048
     Dates: start: 20100401, end: 20100101

REACTIONS (1)
  - DEATH [None]
